FAERS Safety Report 12789657 (Version 3)
Quarter: 2016Q4

REPORT INFORMATION
  Report Type: Spontaneous
  Country: IT (occurrence: IT)
  Receive Date: 20160928
  Receipt Date: 20161025
  Transmission Date: 20170207
  Serious: Yes (Other)
  Sender: FDA-Public Use
  Company Number: IT-UCBSA-2016036934

PATIENT
  Age: 86 Year
  Sex: Male

DRUGS (5)
  1. KEPPRA [Suspect]
     Active Substance: LEVETIRACETAM
     Indication: EPILEPSY
     Dosage: STRENGTH- 500 MG, 2 DF DAILY DOSE
     Route: 048
     Dates: start: 20141127, end: 20160819
  2. RIVOTRIL [Suspect]
     Active Substance: CLONAZEPAM
     Indication: EPILEPSY
     Dosage: STRENGTH- 2.5 MG/ML, 60 DF DAILY DOSE
     Route: 048
     Dates: start: 20160814, end: 20160819
  3. SERENASE [Suspect]
     Active Substance: HALOPERIDOL
     Indication: AGITATION
     Dosage: STRENGTH- 2 MG/ ML, 5 MG DAILY DOSE
     Route: 048
     Dates: start: 20141127, end: 20160819
  4. MICARDIS [Concomitant]
     Active Substance: TELMISARTAN
     Indication: HYPERTENSION
     Dosage: STRENGTH- 80 MG, 1 DF, UNK
     Route: 048
  5. TALOFEN [Suspect]
     Active Substance: PROMAZINE HYDROCHLORIDE
     Indication: AGITATION
     Dosage: STRENGTH- 4 G/100 ML, 25 DF DAILY DOSE
     Route: 048
     Dates: start: 20141127, end: 20160819

REACTIONS (1)
  - Sopor [Recovered/Resolved]

NARRATIVE: CASE EVENT DATE: 20160819
